FAERS Safety Report 17086249 (Version 1)
Quarter: 2019Q4

REPORT INFORMATION
  Report Type: Spontaneous
  Country: US (occurrence: US)
  Receive Date: 20191127
  Receipt Date: 20191127
  Transmission Date: 20200122
  Serious: Yes (Hospitalization)
  Sender: FDA-Public Use
  Company Number: None

PATIENT
  Age: 84 Year
  Sex: Male

DRUGS (4)
  1. PEPTO BISMOL, SMZ-TMP, CARVEDILOL, RA CALCIUM, ASPIRIN, MAGNESIUM [Concomitant]
  2. LIPITOR, LANTUS, BACTRIM, SODIUM BICARBONATE, CALCIUM [Concomitant]
  3. TACROLIMUS. [Suspect]
     Active Substance: TACROLIMUS
     Indication: RENAL TRANSPLANT
     Route: 048
     Dates: start: 20150909
  4. MULTI-VITAMIN, VITAMIN D, VITAMIN E COMPLEX, B12, HUMALOG, HYDRALAZINE [Concomitant]

REACTIONS (1)
  - Gastric ulcer surgery [None]

NARRATIVE: CASE EVENT DATE: 20191111
